FAERS Safety Report 5585165-0 (Version None)
Quarter: 2008Q1

REPORT INFORMATION
  Report Type: 
  Country: None (occurrence: None)
  Receive Date: 20080104
  Receipt Date: 20080104
  Transmission Date: 20080703
  Serious: Yes (Hospitalization)
  Sender: FDA-Public Use
  Company Number: None

PATIENT
  Age: 19 Year
  Sex: Female

DRUGS (9)
  1. HYDROMORPHONE HCL [Suspect]
     Indication: PAIN
     Dosage: 2MG ONCE IV
     Route: 042
     Dates: start: 20070927, end: 20070927
  2. DEPAKOTE [Concomitant]
  3. PULMICORT [Concomitant]
  4. KEPPRA [Concomitant]
  5. PHENOBARBITAL TAB [Concomitant]
  6. CLONIDINE [Concomitant]
  7. ATIVAN [Concomitant]
  8. AMBIEN [Concomitant]
  9. DIASTAT [Concomitant]

REACTIONS (2)
  - GRAND MAL CONVULSION [None]
  - RESPIRATORY ARREST [None]
